FAERS Safety Report 20575935 (Version 1)
Quarter: 2022Q1

REPORT INFORMATION
  Report Type: Spontaneous
  Country: JP (occurrence: JP)
  Receive Date: 20220310
  Receipt Date: 20220310
  Transmission Date: 20220424
  Serious: Yes (Hospitalization)
  Sender: FDA-Public Use
  Company Number: JP-UCBSA-2022011925

PATIENT
  Age: 52 Year
  Sex: Female

DRUGS (1)
  1. VIMPAT [Suspect]
     Active Substance: LACOSAMIDE
     Indication: Epilepsy
     Dosage: 200MG DAILY
     Route: 048
     Dates: end: 202202

REACTIONS (2)
  - Delusional disorder, unspecified type [Recovered/Resolved]
  - Treatment noncompliance [Unknown]
